FAERS Safety Report 16059968 (Version 1)
Quarter: 2019Q2

REPORT INFORMATION
  Report Type: Spontaneous
  Country: US (occurrence: US)
  Receive Date: 20190311
  Receipt Date: 20190311
  Transmission Date: 20190711
  Serious: Yes (Disabling)
  Sender: FDA-Public Use
  Company Number: None

PATIENT
  Age: 62 Year
  Sex: Female
  Weight: 66.6 kg

DRUGS (6)
  1. IMITREX [Concomitant]
     Active Substance: SUMATRIPTAN SUCCINATE
  2. CENTRUM [Concomitant]
     Active Substance: VITAMINS
  3. AIMOVIG [Suspect]
     Active Substance: ERENUMAB-AOOE
     Indication: MIGRAINE
     Dosage: ?          QUANTITY:2 INJECTION(S);OTHER FREQUENCY:MONTHLY;OTHER ROUTE:INJECTION INTO MUSCLE?
     Dates: start: 20190123, end: 20190304
  4. OMEPRAZOLE. [Concomitant]
     Active Substance: OMEPRAZOLE
  5. ESTROGEN [Concomitant]
     Active Substance: ESTROGENS
  6. VITAMIN D3 [Concomitant]
     Active Substance: CHOLECALCIFEROL

REACTIONS (12)
  - Erythema [None]
  - Pruritus [None]
  - Confusional state [None]
  - Thinking abnormal [None]
  - Malaise [None]
  - Impaired work ability [None]
  - Dizziness [None]
  - Alopecia [None]
  - Facial paresis [None]
  - Vision blurred [None]
  - Headache [None]
  - Depression [None]

NARRATIVE: CASE EVENT DATE: 20190222
